FAERS Safety Report 7584729-2 (Version None)
Quarter: 2011Q2

REPORT INFORMATION
  Report Type: 
  Country: None (occurrence: None)
  Receive Date: 20110630
  Receipt Date: 20110617
  Transmission Date: 20111010
  Serious: Yes (Other)
  Sender: FDA-Public Use
  Company Number: PHHY2011DE43656

PATIENT
  Sex: Female
  Weight: 52 kg

DRUGS (6)
  1. ARIMIDEX [Concomitant]
  2. ANTIHYPERTENSIVES [Concomitant]
  3. THYRONAJOD [Concomitant]
     Indication: THYROIDECTOMY
     Dosage: 75 UG, UNK
  4. ZOLEDRONIC ACID [Suspect]
     Dosage: 5 MG
     Route: 042
     Dates: start: 20110413
  5. REMIFEMIN [Concomitant]
     Indication: MENOPAUSAL SYMPTOMS
  6. ERGOCALCIFEROL [Concomitant]
     Indication: OSTEOPOROSIS

REACTIONS (15)
  - PYREXIA [None]
  - HEADACHE [None]
  - MUSCULOSKELETAL PAIN [None]
  - HYPERTENSION [None]
  - CHILLS [None]
  - NIGHT SWEATS [None]
  - WEIGHT DECREASED [None]
  - ARTHRALGIA [None]
  - BACK PAIN [None]
  - MYALGIA [None]
  - TOOTHACHE [None]
  - NAUSEA [None]
  - DIARRHOEA [None]
  - RASH [None]
  - PAIN IN JAW [None]
